FAERS Safety Report 23687030 (Version 1)
Quarter: 2024Q1

REPORT INFORMATION
  Report Type: Spontaneous
  Country: HR (occurrence: HR)
  Receive Date: 20240329
  Receipt Date: 20240329
  Transmission Date: 20240409
  Serious: Yes (Hospitalization, Other)
  Sender: FDA-Public Use
  Company Number: None

PATIENT
  Age: 57 Year
  Sex: Male
  Weight: 82 kg

DRUGS (1)
  1. ERELZI [Suspect]
     Active Substance: ETANERCEPT-SZZS
     Indication: Spondyloarthropathy
     Dosage: JACINA LIJEKA50 MG DOZIRANJE1X TJEDNO
     Route: 058
     Dates: start: 20220725, end: 20221107

REACTIONS (1)
  - Pancreatitis [Recovered/Resolved]

NARRATIVE: CASE EVENT DATE: 20221107
